FAERS Safety Report 14471966 (Version 1)
Quarter: 2018Q1

REPORT INFORMATION
  Report Type: Spontaneous
  Country: US (occurrence: US)
  Receive Date: 20180131
  Receipt Date: 20180131
  Transmission Date: 20180509
  Serious: Yes (Hospitalization, Other)
  Sender: FDA-Public Use
  Company Number: US-GLAXOSMITHKLINE-US2018GSK016059

PATIENT
  Age: 53 Year
  Sex: Female
  Weight: 78 kg

DRUGS (4)
  1. HUMIRA [Suspect]
     Active Substance: ADALIMUMAB
     Indication: ANKYLOSING SPONDYLITIS
     Dosage: 1 DF, CYC
     Route: 058
     Dates: start: 2015, end: 201709
  2. VOLTAREN [Suspect]
     Active Substance: DICLOFENAC SODIUM
     Indication: PRODUCT USED FOR UNKNOWN INDICATION
  3. INDOMETHACIN. [Suspect]
     Active Substance: INDOMETHACIN
     Indication: COLITIS
  4. HUMIRA [Suspect]
     Active Substance: ADALIMUMAB
     Indication: PSORIASIS

REACTIONS (11)
  - Large intestine perforation [Recovered/Resolved]
  - Wound dehiscence [Recovered/Resolved]
  - Weight decreased [Unknown]
  - Post procedural discharge [Unknown]
  - Drain placement [Unknown]
  - Dizziness [Unknown]
  - Surgery [Unknown]
  - Colitis [Recovered/Resolved]
  - Diverticulitis [Recovered/Resolved]
  - Palpitations [Unknown]
  - Colectomy [Unknown]

NARRATIVE: CASE EVENT DATE: 201510
